FAERS Safety Report 11196138 (Version 3)
Quarter: 2015Q4

REPORT INFORMATION
  Report Type: Spontaneous
  Country: HU (occurrence: HU)
  Receive Date: 20150617
  Receipt Date: 20151006
  Transmission Date: 20160304
  Serious: Yes (Other)
  Sender: FDA-Public Use
  Company Number: HU-TEVA-569133ISR

PATIENT
  Age: 71 Year
  Sex: Female

DRUGS (5)
  1. PACLITAXEL. [Suspect]
     Active Substance: PACLITAXEL
     Indication: OVARIAN CANCER
     Dosage: 6 CYCLES
  2. FLUOROURACIL. [Suspect]
     Active Substance: FLUOROURACIL
     Dosage: 10 CYCLES, 44 HOURS INFUSION
     Route: 041
  3. OXALIPLATIN. [Suspect]
     Active Substance: OXALIPLATIN
     Indication: COLON CANCER
     Dosage: 10 CYCLES
  4. FOLINIC ACID [Suspect]
     Active Substance: LEUCOVORIN
     Indication: COLON CANCER
     Dosage: 10 CYCLES
  5. FLUOROURACIL. [Suspect]
     Active Substance: FLUOROURACIL
     Indication: COLON CANCER
     Dosage: 10 CYCLES
     Route: 040

REACTIONS (3)
  - Renal impairment [Recovered/Resolved with Sequelae]
  - Hypersensitivity [Recovered/Resolved]
  - Dyspnoea [Recovered/Resolved]
